FAERS Safety Report 5305984-5 (Version None)
Quarter: 2007Q2

REPORT INFORMATION
  Report Type: 
  Country: None (occurrence: None)
  Receive Date: 20070424
  Receipt Date: 20070125
  Transmission Date: 20071010
  Serious: Yes (Hospitalization)
  Sender: FDA-Public Use
  Company Number: FR-BRISTOL-MYERS SQUIBB COMPANY-13658968

PATIENT
  Age: 70 Year
  Sex: Male

DRUGS (9)
  1. QUESTRAN [Suspect]
     Indication: OVERDOSE
     Route: 048
     Dates: start: 20061216, end: 20061217
  2. PYOSTACINE [Suspect]
     Indication: CARDIAC OPERATION
     Dates: start: 20061207, end: 20061214
  3. TAHOR [Concomitant]
  4. DIGOXIN [Concomitant]
  5. PREVISCAN [Concomitant]
  6. CORDARONE [Concomitant]
  7. IRBESARTAN [Concomitant]
  8. LASIX [Concomitant]
  9. GLUCOPHAGE [Concomitant]

REACTIONS (1)
  - NEUTROPENIA [None]
